FAERS Safety Report 15685057 (Version 1)
Quarter: 2018Q4

REPORT INFORMATION
  Report Type: Spontaneous
  Country: FR (occurrence: FR)
  Receive Date: 20181204
  Receipt Date: 20181204
  Transmission Date: 20190205
  Serious: Yes (Hospitalization)
  Sender: FDA-Public Use
  Company Number: FR-009507513-1812FRA001085

PATIENT
  Age: 79 Year
  Sex: Male
  Weight: 58 kg

DRUGS (3)
  1. FIDAXOMICIN [Suspect]
     Active Substance: FIDAXOMICIN
     Indication: CLOSTRIDIUM DIFFICILE COLITIS
     Dosage: 400 MILLIGRAM, QD
     Route: 048
     Dates: start: 20181001, end: 20181011
  2. VANCOMYCIN MYLAN [Suspect]
     Active Substance: VANCOMYCIN
     Indication: OSTEITIS
     Dosage: 2 UNK, ONCE DAILY
     Route: 041
     Dates: start: 20180915, end: 20181011
  3. MEROPENEM KABI [Suspect]
     Active Substance: MEROPENEM
     Indication: OSTEITIS
     Dosage: 6 GRAM, QD
     Route: 041
     Dates: start: 20180918, end: 20181011

REACTIONS (3)
  - Eosinophilia [Recovered/Resolved]
  - Pruritus [Recovered/Resolved]
  - Rash maculo-papular [Recovering/Resolving]

NARRATIVE: CASE EVENT DATE: 20181008
